FAERS Safety Report 8095391-7 (Version None)
Quarter: 2012Q1

REPORT INFORMATION
  Report Type: 
  Country: None (occurrence: None)
  Receive Date: 20120126
  Receipt Date: 20120110
  Transmission Date: 20120608
  Serious: Yes (Other)
  Sender: FDA-Public Use
  Company Number: 2012P1002092

PATIENT
  Age: 12 Year
  Sex: Female

DRUGS (1)
  1. METHIMAZOLE [Suspect]
     Indication: HYPERTHYROIDISM
     Dosage: 0.7 MG/KG;QD

REACTIONS (3)
  - JOINT EFFUSION [None]
  - POLYARTHRITIS [None]
  - HYPOTHYROIDISM [None]
